FAERS Safety Report 4542348-6 (Version None)
Quarter: 2004Q4

REPORT INFORMATION
  Report Type: 
  Country: None (occurrence: None)
  Receive Date: 20041227
  Receipt Date: 20041213
  Transmission Date: 20050328
  Serious: Yes (Hospitalization, Other)
  Sender: FDA-Public Use
  Company Number: 2004110445

PATIENT
  Age: 83 Year
  Sex: Male
  Weight: 68.0396 kg

DRUGS (2)
  1. CELEBREX [Suspect]
     Indication: SWELLING
     Dosage: ORAL
     Route: 048
     Dates: start: 20040701, end: 20040701
  2. ALL OTHER THERAPEUTIC PROUDCTS (ALL OTHER THERAPEUTIC PRODUCTS) [Concomitant]

REACTIONS (5)
  - ASTHENIA [None]
  - DRUG INEFFECTIVE [None]
  - FALL [None]
  - HAEMORRHAGE [None]
  - MUSCULAR WEAKNESS [None]
